FAERS Safety Report 10159553 (Version 2)
Quarter: 2014Q2

REPORT INFORMATION
  Report Type: Spontaneous
  Country: TR (occurrence: TR)
  Receive Date: 20140508
  Receipt Date: 20140508
  Transmission Date: 20141212
  Serious: Yes (Death, Other)
  Sender: FDA-Public Use
  Company Number: TR-AMGEN INC.-TURSP2013061216

PATIENT
  Age: 39 Year
  Sex: Male

DRUGS (2)
  1. ENBREL [Suspect]
     Indication: ANKYLOSING SPONDYLITIS
     Dosage: 50 MG, WEEKLY
     Route: 058
     Dates: start: 20120626
  2. ENDOL                              /00003801/ [Concomitant]
     Indication: ANKYLOSING SPONDYLITIS
     Dosage: UNK, AS NEEDED (IF HE HAS PAIN), MAXIMUM DOSE IS TWICE DAILY
     Route: 048

REACTIONS (3)
  - Cerebral haemorrhage [Fatal]
  - Pain [Unknown]
  - Hepatic enzyme increased [Not Recovered/Not Resolved]
